FAERS Safety Report 25352662 (Version 1)
Quarter: 2025Q2

REPORT INFORMATION
  Report Type: Report from Study
  Country: US (occurrence: US)
  Receive Date: 20250523
  Receipt Date: 20250523
  Transmission Date: 20250716
  Serious: No
  Sender: MALLINCKRODT
  Company Number: US-MALLINCKRODT-MNK202500652

PATIENT
  Sex: Female
  Weight: 161 kg

DRUGS (1)
  1. CORTICOTROPIN [Suspect]
     Active Substance: CORTICOTROPIN
     Indication: Rheumatoid arthritis

REACTIONS (9)
  - Pain [Unknown]
  - Illness [Unknown]
  - Ear discomfort [Unknown]
  - Sensitivity to weather change [Unknown]
  - Sinus disorder [Unknown]
  - Epistaxis [Unknown]
  - Swelling [Recovering/Resolving]
  - Malaise [Recovered/Resolved]
  - Headache [Unknown]
